FAERS Safety Report 10085251 (Version 2)
Quarter: 2014Q2

REPORT INFORMATION
  Report Type: Spontaneous
  Country: US (occurrence: US)
  Receive Date: 20140417
  Receipt Date: 20140417
  Transmission Date: 20141212
  Serious: Yes (Hospitalization, Other)
  Sender: FDA-Public Use
  Company Number: PHHY2014US020092

PATIENT
  Age: 34 Year
  Sex: Male

DRUGS (19)
  1. LIORESAL INTRATECAL [Suspect]
     Indication: MUSCLE SPASTICITY
     Dosage: 1058 UG, PER DAY (CONCENTRATION 1960 UG/ML)
     Route: 039
  2. LIORESAL INTRATECAL [Suspect]
     Dosage: PUMP DOSE WAS INCREASED BY 6% (CONCENTRATION 1960 UG/ML)
     Route: 039
     Dates: start: 20140206
  3. LIORESAL INTRATECAL [Suspect]
     Dosage: 1000.9 UG/ML, UNK (CONCENTRATION 2000 UG/ML)
     Route: 037
     Dates: start: 20140210
  4. LIORESAL INTRATECAL [Suspect]
     Dosage: 890.3 UNK, OVER 27 MINUTES (PRIMING BOLUS)
     Route: 037
  5. LIORESAL INTRATECAL [Suspect]
     Dosage: 0.54 ML, DAY (1960 MCG/ML)
     Route: 037
  6. DIAZEPAM [Suspect]
     Dosage: UNK UKN, UNK
  7. GABAPENTIN [Suspect]
     Dosage: UNK UKN, UNK
  8. OMEPRAZOLE DELAYED RELEASE CAPSULES [Suspect]
     Dosage: UNK UKN, UNK
  9. KETOCONAZOLE [Suspect]
     Dosage: UNK UKN, UNK
  10. CLONIDINE [Suspect]
     Dosage: 216.06 UG, PER DAY
     Route: 039
  11. CLONIDINE [Suspect]
     Dosage: PUMP DOSE WAS INCREASED BY 6%
     Route: 039
     Dates: start: 20140206
  12. MORPHINE [Suspect]
     Dosage: 4.861 MG, PER DAY
     Route: 039
  13. MORPHINE [Suspect]
     Dosage: PUMP DOSE WAS INCREASED BY 6%
     Route: 039
     Dates: start: 20140206
  14. MORPHINE [Suspect]
     Dosage: 4.504 MG/ML, UNK
     Route: 037
     Dates: start: 20140210
  15. MORPHINE [Suspect]
     Dosage: 4.006 UNK, OVER 27 MINUTES (PRIMING BOLUS)
     Route: 037
  16. MORPHINE [Suspect]
     Dosage: 4.8 MG, DAY
     Route: 037
  17. CELEBREX [Suspect]
     Dosage: UNK UKN, UNK
  18. OXYCODONE [Suspect]
     Dosage: UNK UKN, UNK
  19. PROVENTIL [Suspect]
     Dosage: UNK UKN, UNK

REACTIONS (4)
  - Urinary tract infection [Unknown]
  - Pain [Unknown]
  - Mental status changes [Unknown]
  - Drug withdrawal syndrome [Unknown]
